FAERS Safety Report 4788578-X (Version None)
Quarter: 2005Q4

REPORT INFORMATION
  Report Type: 
  Country: None (occurrence: None)
  Receive Date: 20051005
  Receipt Date: 20050823
  Transmission Date: 20060501
  Serious: Yes (Hospitalization)
  Sender: FDA-Public Use
  Company Number: JP-MERCK-0508USA04523

PATIENT
  Age: 71 Year
  Sex: Male

DRUGS (3)
  1. PEPCID RPD [Suspect]
     Indication: GASTRITIS
     Route: 048
     Dates: start: 20050701, end: 20050725
  2. HORIZON [Suspect]
     Route: 048
     Dates: start: 20050702, end: 20050715
  3. CHLORPROMAZINE [Suspect]
     Indication: HICCUPS
     Route: 048
     Dates: start: 20050624, end: 20050714

REACTIONS (4)
  - BLOOD BILIRUBIN INCREASED [None]
  - CHROMATURIA [None]
  - JAUNDICE [None]
  - LIVER DISORDER [None]
